FAERS Safety Report 7184400-5 (Version None)
Quarter: 2010Q4

REPORT INFORMATION
  Report Type: 
  Country: None (occurrence: None)
  Receive Date: 20101123
  Receipt Date: 20100914
  Transmission Date: 20110411
  Serious: No
  Sender: FDA-Public Use
  Company Number: 018778

PATIENT
  Sex: Female
  Weight: 74.8 kg

DRUGS (14)
  1. CIMZIA [Suspect]
     Indication: CROHN'S DISEASE
     Dosage: 400 MG 1X/4 WEEKS SUBCUTANEOUS
     Route: 058
     Dates: start: 20090701
  2. OMEPRAZOLE [Concomitant]
  3. BISOPROLOL FUMARATE [Concomitant]
  4. LEVIB [Concomitant]
  5. ELAVIL [Concomitant]
  6. AZATHIOPRINE [Concomitant]
  7. VITAMIN D [Concomitant]
  8. CITRACAL [Concomitant]
  9. MULTI-VITAMINS [Concomitant]
  10. POTASSIUM [Concomitant]
  11. VITAMIN B12 (CYAOCOBALAMIN AND DERIVATIVES [Concomitant]
  12. BIFIDOBACTERIUM BIFIDUM [Concomitant]
  13. LEVSIN [Concomitant]
  14. CELEBREX [Concomitant]

REACTIONS (1)
  - OROPHARYNGEAL PAIN [None]
